FAERS Safety Report 7070049-1 (Version None)
Quarter: 2010Q4

REPORT INFORMATION
  Report Type: 
  Country: None (occurrence: None)
  Receive Date: 20101028
  Receipt Date: 20100810
  Transmission Date: 20110411
  Serious: No
  Sender: FDA-Public Use
  Company Number: US-WYE-H16900310

PATIENT
  Age: 42 Year
  Sex: Female
  Weight: 66.28 kg

DRUGS (3)
  1. ADVIL [Suspect]
     Indication: MYALGIA
     Route: 048
     Dates: start: 20100720, end: 20100809
  2. VALTREX [Concomitant]
  3. LOTENSIN [Concomitant]

REACTIONS (1)
  - URTICARIA [None]
